FAERS Safety Report 6289228-6 (Version None)
Quarter: 2009Q3

REPORT INFORMATION
  Report Type: 
  Country: None (occurrence: None)
  Receive Date: 20090729
  Receipt Date: 20090729
  Transmission Date: 20100115
  Serious: Yes (Hospitalization)
  Sender: FDA-Public Use
  Company Number: None

PATIENT
  Age: 73 Year
  Sex: Male
  Weight: 54.4 kg

DRUGS (2)
  1. LAMICTAL [Suspect]
     Indication: CONVULSION
     Dosage: 25MG BID PO
     Route: 048
     Dates: start: 20090603, end: 20090724
  2. KEPPRA [Suspect]
     Indication: CONVULSION
     Dosage: 500MG BID PO
     Route: 048
     Dates: start: 20090605, end: 20090724

REACTIONS (1)
  - PANCYTOPENIA [None]
